FAERS Safety Report 19997018 (Version 1)
Quarter: 2021Q4

REPORT INFORMATION
  Report Type: Spontaneous
  Country: US (occurrence: US)
  Receive Date: 20211026
  Receipt Date: 20211026
  Transmission Date: 20220304
  Serious: Yes (Hospitalization)
  Sender: FDA-Public Use
  Company Number: US-ROCHE-2937647

PATIENT
  Sex: Male

DRUGS (1)
  1. XELODA [Suspect]
     Active Substance: CAPECITABINE
     Indication: Anal cancer
     Dosage: FREQUENCY- TAKE 4 TABLET TWICE A DAILY FOR 14 DAYS
     Route: 048
     Dates: start: 202105

REACTIONS (3)
  - Abdominal pain upper [Unknown]
  - Nausea [Unknown]
  - Off label use [Unknown]
